FAERS Safety Report 4606419-8 (Version None)
Quarter: 2005Q2

REPORT INFORMATION
  Report Type: 
  Country: None (occurrence: None)
  Receive Date: 20050223
  Receipt Date: 20041025
  Transmission Date: 20051028
  Serious: Yes (Hospitalization)
  Sender: FDA-Public Use
  Company Number: WAES 0410USA03746

PATIENT
  Age: 90 Year
  Sex: Male

DRUGS (3)
  1. ZOCOR [Suspect]
     Dosage: PO
     Route: 048
     Dates: start: 19960101
  2. THERAPY UNSPECIFIED [Suspect]
  3. BEXTRA [Concomitant]

REACTIONS (1)
  - RHABDOMYOLYSIS [None]
